FAERS Safety Report 4459718-7 (Version None)
Quarter: 2004Q3

REPORT INFORMATION
  Report Type: 
  Country: None (occurrence: None)
  Receive Date: 20040923
  Receipt Date: 20040913
  Transmission Date: 20050211
  Serious: Yes (Death, Hospitalization, Other)
  Sender: FDA-Public Use
  Company Number: US-JNJFOC-20040903563

PATIENT
  Age: 42 Year
  Sex: Female

DRUGS (9)
  1. ACETAMINOPHEN (ACETEMINOPHEN) [Suspect]
     Indication: SUICIDE ATTEMPT
     Dosage: ^ENTIRE BOTTLE^
  2. ACETAMINOPHEN/DIPHENHYDRAMINE (ACETAMINOPHEN/DIPHENHYDRAMINE HCL) [Suspect]
     Indication: SUICIDE ATTEMPT
     Dosage: ORAL
     Route: 048
  3. ACETAMINOPHEN/ASPIRIN/CAFFEINE (THOMAPYRYIN N) [Suspect]
     Indication: SUICIDE ATTEMPT
     Dosage: ORAL
     Route: 048
  4. QUINAPRIL HCL [Suspect]
     Indication: SUICIDE ATTEMPT
     Dosage: ORAL
     Route: 048
  5. HYOSCYAMINE (HYOSCYAMINE) [Suspect]
     Indication: SUICIDE ATTEMPT
     Dosage: ORAL
     Route: 048
  6. CIMETIDINE [Suspect]
     Indication: SUICIDE ATTEMPT
     Dosage: ORAL
     Route: 048
  7. FLUOXETINE [Suspect]
     Indication: SUICIDE ATTEMPT
     Dosage: ORAL
     Route: 048
  8. CARISOPRODOL [Suspect]
     Indication: FALL
     Dosage: 7 DOSE (S), ORAL
     Route: 048
  9. VICODIN [Suspect]
     Indication: FALL
     Dosage: 5 DOSE (S), ORAL
     Route: 048

REACTIONS (13)
  - ALANINE AMINOTRANSFERASE INCREASED [None]
  - ASPARTATE AMINOTRANSFERASE INCREASED [None]
  - BLOOD AMYLASE INCREASED [None]
  - BLOOD BICARBONATE DECREASED [None]
  - BLOOD GLUCOSE DECREASED [None]
  - BLOOD PH DECREASED [None]
  - HYPOTENSION [None]
  - INTERNATIONAL NORMALISED RATIO INCREASED [None]
  - LIPASE INCREASED [None]
  - MENTAL STATUS CHANGES [None]
  - OVERDOSE [None]
  - SOMNOLENCE [None]
  - TACHYPNOEA [None]
